FAERS Safety Report 4751063-5 (Version None)
Quarter: 2005Q3

REPORT INFORMATION
  Report Type: 
  Country: None (occurrence: None)
  Receive Date: 20050822
  Receipt Date: 20050811
  Transmission Date: 20060218
  Serious: Yes (Life-Threatening, Other)
  Sender: FDA-Public Use
  Company Number: HQWYE697104AUG05

PATIENT
  Age: 67 Year
  Sex: Male

DRUGS (8)
  1. AMIODARONE HCL [Suspect]
     Indication: ATRIAL FIBRILLATION
     Dosage: 300 MG IN DEXTROSE 250 CC IN 60 MINUTES, INTRAVENOUS
     Route: 042
     Dates: start: 20050620, end: 20050620
  2. AMIODARONE (AMIODARONE, TABLET) [Suspect]
     Dosage: 200 MG 1X PER 1 DAY, ORAL
     Route: 048
     Dates: end: 20050620
  3. ALPRAZOLAM [Concomitant]
  4. DILTIAZEM [Concomitant]
  5. INDAPAMIDE [Concomitant]
  6. WARFARIN (WARFARIN) [Concomitant]
  7. METFORMIN HCL [Concomitant]
  8. LISINOPRIL [Concomitant]

REACTIONS (3)
  - BRONCHOSPASM [None]
  - HYPERTENSIVE CRISIS [None]
  - RASH GENERALISED [None]
